FAERS Safety Report 18666631 (Version 1)
Quarter: 2020Q4

REPORT INFORMATION
  Report Type: Spontaneous
  Country: NL (occurrence: NL)
  Receive Date: 20201227
  Receipt Date: 20201227
  Transmission Date: 20210114
  Serious: Yes (Hospitalization)
  Sender: FDA-Public Use
  Company Number: NL-TEVA-2020-NL-1861344

PATIENT
  Age: 82 Year
  Sex: Male
  Weight: 53 kg

DRUGS (19)
  1. DARBEPOETINE ALFA INJVLST 100UG/ML / ARANESP   30 INJVLST 100MCG/ML WW [Concomitant]
     Dosage: 100 UG/ML  , THERAPY START DATE AND END DATE : ASKED BUT UNKNOWN
  2. PANTOPRAZOL TABLET MSR 40MG / PANTOZOL TABLET MSR 40MG [Concomitant]
     Dosage: 40 MG , THERAPY START DATE AND END DATE : ASKED BUT UNKNOWN
  3. LANTHAANCARBONAAT KAUWTABLET  750MG / FOSRENOL KAUWTABLET  750MG [Concomitant]
     Dosage: 750 MG , THERAPY START DATE AND END DATE : ASKED BUT UNKNOWN
  4. AMLODIPINE [Concomitant]
     Active Substance: AMLODIPINE BESYLATE
     Dosage: 10 MG , THERAPY START DATE AND END DATE : ASKED BUT UNKNOWN
  5. FERRICARBOXYMALTOSE INJVLST 50MGFE/ML / FERINJECT INJVLST 50MG/ML FLAC [Concomitant]
     Dosage: 50 MG/ML , THERAPY START DATE AND END DATE : ASKED BUT UNKNOWN
  6. FOLIUMZUUR TABLET 5MG / BRAND NAME NOT SPECIFIED [Concomitant]
     Dosage: 5 MG , THERAPY START DATE AND END DATE : ASKED BUT UNKNOWN
  7. SEVELAMEER TABLET 800MG (CARBONAAT) / BRAND NAME NOT SPECIFIED [Concomitant]
     Active Substance: SEVELAMER
     Dosage: 800 MG , THERAPY START DATE AND END DATE : ASKED BUT UNKNOWN
  8. MULTIVITAMINE VOOR DIALYSE CAPSULE (ADDED/UMCG) / BRAND NAME NOT SPECI [Concomitant]
     Dosage: THERAPY START DATE AND END DATE : ASKED BUT UNKNOWN
  9. PARACETAMOL TABLET  500MG / BRAND NAME NOT SPECIFIED [Concomitant]
     Dosage: 500 MG , THERAPY START DATE AND END DATE : ASKED BUT UNKNOWN
  10. COLECALCIFEROL DRANK  25.000IE/ML / D-CURA DRANK  25000IE AMPUL 1ML [Concomitant]
     Dosage: 25000 IE/ML (UNITS PER MILLILITER) , THERAPY START DATE AND END DATE : ASKED BUT UNKNOWN
  11. METRONIDAZOL TABLET 500MG / BRAND NAME NOT SPECIFIED [Suspect]
     Active Substance: METRONIDAZOLE
     Indication: BACTEROIDES BACTERAEMIA
     Dosage: 1500 MILLIGRAM DAILY;
     Dates: start: 20200513, end: 20201202
  12. ACENOCOUMAROL TABLET 1MG / BRAND NAME NOT SPECIFIED [Concomitant]
     Active Substance: ACENOCOUMAROL
     Dosage: 1 MG ,THERAPY START DATE AND END DATE : ASKED BUT UNKNOWN
  13. MUPIROCINE NEUSZALF 20MG/G / BACTROBAN NEUSZALF 20MG/G [Concomitant]
     Dosage: 20 MG/G ,THERAPY START DATE AND END DATE : ASKED BUT UNKNOWN
  14. ZOPICLON TABLET 7,5MG / BRAND NAME NOT SPECIFIED [Concomitant]
     Dosage: 7,5 MG , THERAPY START DATE AND END DATE : ASKED BUT UNKNOWN
  15. BUMETANIDE TABLET 5MG / BRAND NAME NOT SPECIFIED [Concomitant]
     Dosage: 5 MG , THERAPY START DATE AND END DATE : ASKED BUT UNKNOWN
  16. PRAMIPEXOL TABLET 0,125MG (0,088MG BASE) / BRAND NAME NOT SPECIFIED [Concomitant]
     Dosage: 0.125 MG ,THERAPY START DATE AND END DATE : ASKED BUT UNKNOWN
  17. CITALOPRAM TABLET OMHULD 20MG / CIPRAMIL TABLET OMHULD 20MG [Concomitant]
     Dosage: 20 MG , THERAPY START DATE AND END DATE : ASKED BUT UNKNOWN
  18. MIRTAZAPINE TABLET 15MG / BRAND NAME NOT SPECIFIED [Concomitant]
     Active Substance: MIRTAZAPINE
     Dosage: 15 MG , THERAPY START DATE AND END DATE : ASKED BUT UNKNOWN
  19. PERINDOPRIL TABLET 4MG (ERBUMINE) / BRAND NAME NOT SPECIFIED [Concomitant]
     Dosage: 4 MG , THERAPY START DATE AND END DATE : ASKED BUT UNKNOWN

REACTIONS (2)
  - Polyneuropathy [Recovering/Resolving]
  - Toxic encephalopathy [Recovering/Resolving]

NARRATIVE: CASE EVENT DATE: 20200814
